FAERS Safety Report 6863318-9 (Version None)
Quarter: 2010Q3

REPORT INFORMATION
  Report Type: 
  Country: None (occurrence: None)
  Receive Date: 20100721
  Receipt Date: 20100714
  Transmission Date: 20110219
  Serious: Yes (Death)
  Sender: FDA-Public Use
  Company Number: IT-TEVA-241772ISR

PATIENT
  Sex: Male

DRUGS (11)
  1. VINCRISTINE [Suspect]
     Indication: DIFFUSE LARGE B-CELL LYMPHOMA
     Route: 042
     Dates: start: 20100701, end: 20100701
  2. CYCLOPHOSPHAMIDE [Suspect]
     Indication: DIFFUSE LARGE B-CELL LYMPHOMA
     Route: 042
     Dates: start: 20100701, end: 20100701
  3. DOXORUBICIN HCL [Suspect]
     Indication: DIFFUSE LARGE B-CELL LYMPHOMA
     Route: 042
     Dates: start: 20100701, end: 20100701
  4. PREDNISONE [Suspect]
     Indication: DIFFUSE LARGE B-CELL LYMPHOMA
     Route: 048
     Dates: start: 20100701, end: 20100705
  5. MORPHINE [Concomitant]
     Route: 048
  6. RITUXIMAB [Concomitant]
     Indication: DIFFUSE LARGE B-CELL LYMPHOMA
     Route: 042
     Dates: start: 20100709, end: 20100709
  7. ATORVASTATIN CALCIUM [Concomitant]
     Indication: DYSLIPIDAEMIA
     Route: 048
  8. BROMAZEPAM [Concomitant]
     Dosage: 15 DROPS
     Route: 048
  9. OMEPRAZOLE [Concomitant]
     Route: 048
  10. PREGABALIN [Concomitant]
     Route: 048
  11. FENTANYL [Concomitant]
     Dosage: MCG/H
     Route: 062

REACTIONS (3)
  - MULTI-ORGAN FAILURE [None]
  - NEUTROPENIA [None]
  - SEPSIS [None]
